FAERS Safety Report 15576102 (Version 1)
Quarter: 2018Q4

REPORT INFORMATION
  Report Type: Spontaneous
  Country: US (occurrence: US)
  Receive Date: 20181029
  Receipt Date: 20181029
  Transmission Date: 20190205
  Serious: Yes (Other)
  Sender: FDA-Public Use
  Company Number: None

PATIENT
  Age: 49 Year
  Sex: Male
  Weight: 210 kg

DRUGS (2)
  1. ATAZANAVIR SULFATE 300 MG [Suspect]
     Active Substance: ATAZANAVIR
     Indication: HIV INFECTION
     Route: 048
     Dates: start: 20180116
  2. ABACAVIR SULFATE-LAMIVUDINE 600-300 [Suspect]
     Active Substance: ABACAVIR\LAMIVUDINE
     Indication: HIV INFECTION
     Dosage: 600-300 MG PO DAILY PO
     Route: 048
     Dates: start: 20180323

REACTIONS (1)
  - HIV viraemia [None]

NARRATIVE: CASE EVENT DATE: 20181001
